FAERS Safety Report 5246023-4 (Version None)
Quarter: 2007Q1

REPORT INFORMATION
  Report Type: 
  Country: None (occurrence: None)
  Receive Date: 20061201
  Receipt Date: 20060725
  Transmission Date: 20070707
  Serious: No
  Sender: FDA-Public Use
  Company Number: 2006PV018201

PATIENT
  Age: 64 Year
  Sex: Female
  Weight: 79.3795 kg

DRUGS (4)
  1. BYETTA [Suspect]
     Indication: DIABETES MELLITUS NON-INSULIN-DEPENDENT
     Dosage: 10 MCG;BID;SC, 5 MG;BID;SC
     Route: 058
     Dates: start: 20060601, end: 20060721
  2. BYETTA [Suspect]
     Indication: DIABETES MELLITUS NON-INSULIN-DEPENDENT
     Dosage: 10 MCG;BID;SC, 5 MG;BID;SC
     Route: 058
     Dates: start: 20060722
  3. ACTOS [Concomitant]
  4. METFORMIN HCL [Concomitant]

REACTIONS (7)
  - CHILLS [None]
  - ERUCTATION [None]
  - FATIGUE [None]
  - FEELING COLD [None]
  - NAUSEA [None]
  - VOMITING [None]
  - WEIGHT DECREASED [None]
